FAERS Safety Report 15587951 (Version 1)
Quarter: 2018Q4

REPORT INFORMATION
  Report Type: Report from Study
  Country: CN (occurrence: CN)
  Receive Date: 20181105
  Receipt Date: 20181105
  Transmission Date: 20190205
  Serious: Yes (Death)
  Sender: FDA-Public Use
  Company Number: CN-PFIZER INC-2018449647

PATIENT

DRUGS (2)
  1. PACLITAXEL. [Suspect]
     Active Substance: PACLITAXEL
     Indication: SQUAMOUS CELL CARCINOMA OF LUNG
     Dosage: UNK UNK, EVERY 3 WEEKS  (ONE CYCLE)
  2. CISPLATIN. [Suspect]
     Active Substance: CISPLATIN
     Indication: SQUAMOUS CELL CARCINOMA OF LUNG
     Dosage: UNK UNK, EVERY 3 WEEKS  (ONE CYCLE)

REACTIONS (2)
  - Myositis [Fatal]
  - Myocarditis [Fatal]
